FAERS Safety Report 6179490-2 (Version None)
Quarter: 2009Q2

REPORT INFORMATION
  Report Type: 
  Country: None (occurrence: None)
  Receive Date: 20090505
  Receipt Date: 20090427
  Transmission Date: 20091009
  Serious: Yes (Other)
  Sender: FDA-Public Use
  Company Number: CA-ROCHE-629992

PATIENT
  Age: 31 Year
  Sex: Female

DRUGS (15)
  1. CAPECITABINE [Suspect]
     Route: 042
     Dates: start: 20010101
  2. TRASTUZUMAB [Suspect]
     Route: 042
     Dates: start: 20010101
  3. TRASTUZUMAB [Suspect]
     Route: 042
     Dates: start: 20060101
  4. TRASTUZUMAB [Suspect]
     Route: 037
     Dates: start: 20060101
  5. TRASTUZUMAB [Suspect]
     Route: 037
     Dates: start: 20060101
  6. TRASTUZUMAB [Suspect]
     Route: 037
  7. TRASTUZUMAB [Suspect]
     Route: 037
     Dates: start: 20080201, end: 20080801
  8. CARBOPLATIN [Suspect]
     Route: 042
  9. PACLITAXEL [Suspect]
     Route: 042
  10. LIPOSOMAL DOXORUBICIN [Suspect]
     Route: 042
  11. METHOTREXATE [Suspect]
     Route: 037
  12. THIOTEPA [Suspect]
     Route: 037
  13. THIOTEPA [Suspect]
     Route: 037
     Dates: start: 20080201, end: 20080801
  14. DOXORUBICIN HCL [Suspect]
     Route: 065
     Dates: start: 19990101
  15. CYCLOPHOSPHAMIDE [Suspect]
     Route: 065

REACTIONS (9)
  - ANAEMIA [None]
  - EYELID PTOSIS [None]
  - HERPES ZOSTER [None]
  - HYPOAESTHESIA FACIAL [None]
  - METASTASES TO MENINGES [None]
  - NEUTROPENIA [None]
  - PERONEAL NERVE PALSY [None]
  - VIITH NERVE PARALYSIS [None]
  - VISUAL IMPAIRMENT [None]
